FAERS Safety Report 8836538 (Version 1)
Quarter: 2012Q4

REPORT INFORMATION
  Report Type: Spontaneous
  Country: GB (occurrence: None)
  Receive Date: 20121009
  Receipt Date: 20121009
  Transmission Date: 20130627
  Serious: Yes (Disabling)
  Sender: FDA-Public Use
  Company Number: AUR-APL-2012-04199

PATIENT
  Age: 68 Year
  Sex: Male

DRUGS (7)
  1. GABAPENTIN [Suspect]
     Indication: NEUROPATHIC PAIN
     Dates: start: 20120825
  2. GABAPENTIN [Suspect]
     Indication: NEUROPATHIC PAIN
     Route: 048
  3. GLICLAZIDE (GLICLAZIDE) [Concomitant]
  4. LISINOPRIL (LISINOPRIL) [Concomitant]
  5. METFORMIN (METFORMIN) [Concomitant]
  6. SALBUTAMOL (SALBUTAMOL) [Concomitant]
  7. SERETIDE (SERETIDE /01420901/) [Concomitant]

REACTIONS (5)
  - Palpitations [None]
  - Paraesthesia [None]
  - Intranasal paraesthesia [None]
  - Erythema [None]
  - Feeling hot [None]
